FAERS Safety Report 9789984 (Version 1)
Quarter: 2013Q4

REPORT INFORMATION
  Report Type: Spontaneous
  Country: US (occurrence: None)
  Receive Date: 20131230
  Receipt Date: 20131230
  Transmission Date: 20140711
  Serious: Yes (Other)
  Sender: FDA-Public Use
  Company Number: None

PATIENT
  Age: 25 Year
  Sex: Female
  Weight: 86.18 kg

DRUGS (1)
  1. MONISTAT [Suspect]
     Indication: FUNGAL INFECTION
     Dates: start: 20131225, end: 20131225

REACTIONS (6)
  - Burning sensation [None]
  - Pruritus [None]
  - Genital swelling [None]
  - Blister [None]
  - Skin lesion [None]
  - Haemorrhage [None]
